FAERS Safety Report 4427454-9 (Version None)
Quarter: 2004Q3

REPORT INFORMATION
  Report Type: 
  Country: None (occurrence: None)
  Receive Date: 20040812
  Receipt Date: 20040805
  Transmission Date: 20050211
  Serious: Yes (Hospitalization)
  Sender: FDA-Public Use
  Company Number: 2004SE04455

PATIENT
  Age: 86 Year
  Sex: Male

DRUGS (5)
  1. BLOPRESS [Suspect]
     Indication: HYPERTENSION
  2. BEPRICOR [Suspect]
  3. 8-HOUR BAYER [Suspect]
  4. BEZATOL - SLOW RELEASE [Suspect]
  5. SHAKUYAKUKANZOUTOU [Suspect]

REACTIONS (1)
  - INTERSTITIAL LUNG DISEASE [None]
